FAERS Safety Report 4279756-7 (Version None)
Quarter: 2004Q1

REPORT INFORMATION
  Report Type: 
  Country: None (occurrence: None)
  Receive Date: 20040123
  Receipt Date: 20040113
  Transmission Date: 20041129
  Serious: Yes (Congenital Anomaly)
  Sender: FDA-Public Use
  Company Number: 2003112876

PATIENT

DRUGS (2)
  1. ZOLOFT [Suspect]
     Indication: ANXIETY
     Dosage: 100 MG DAILY ORAL
     Route: 048
     Dates: start: 19990916
  2. ZOLOFT [Suspect]
     Indication: DEPRESSION
     Dosage: 100 MG DAILY ORAL
     Route: 048
     Dates: start: 19990916

REACTIONS (3)
  - MATERNAL DRUGS AFFECTING FOETUS [None]
  - PREGNANCY [None]
  - TALIPES [None]
